FAERS Safety Report 7139112-0 (Version None)
Quarter: 2010Q4

REPORT INFORMATION
  Report Type: 
  Country: None (occurrence: None)
  Receive Date: 20101206
  Receipt Date: 20101130
  Transmission Date: 20110411
  Serious: Yes (Death, Hospitalization)
  Sender: FDA-Public Use
  Company Number: B0687558A

PATIENT
  Age: 53 Year
  Sex: Female

DRUGS (2)
  1. TYVERB [Suspect]
     Indication: BREAST CANCER STAGE IV
     Route: 048
     Dates: start: 20100327, end: 20100415
  2. CAPECITABINE [Concomitant]

REACTIONS (2)
  - PROCTITIS [None]
  - STOMATITIS [None]
